FAERS Safety Report 9171723 (Version 1)
Quarter: 2013Q1

REPORT INFORMATION
  Report Type: Spontaneous
  Country: IT (occurrence: None)
  Receive Date: 20130313
  Receipt Date: 20130313
  Transmission Date: 20140127
  Serious: Yes (Other)
  Sender: FDA-Public Use
  Company Number: 1393173

PATIENT
  Age: 62 Year
  Sex: Male

DRUGS (1)
  1. OXALIPLATIN [Suspect]
     Indication: COLON CANCER
     Dosage: 140  MG  MILLIGRAM(S),  TOTAL,  ?INTRAVENOUS  (NOT  OTHERWISE  SPECIFIED)?08/08/2012  -  08/08/2012
     Route: 042
     Dates: start: 20120808, end: 20120808

REACTIONS (2)
  - Erythema [None]
  - Pruritus [None]
